FAERS Safety Report 8000794-2 (Version None)
Quarter: 2011Q4

REPORT INFORMATION
  Report Type: 
  Country: None (occurrence: None)
  Receive Date: 20111219
  Receipt Date: 20111208
  Transmission Date: 20120403
  Serious: Yes (Hospitalization, Disabling, Other)
  Sender: FDA-Public Use
  Company Number: 2010MA005194

PATIENT
  Sex: Female
  Weight: 81.0124 kg

DRUGS (38)
  1. ACTOS [Concomitant]
  2. TEMAZEPAM [Concomitant]
  3. CELEXA [Concomitant]
  4. ALBUTEROL [Concomitant]
  5. LISINOPRIL [Concomitant]
  6. TEMAZEPAM [Concomitant]
  7. TETRACYCLINE [Concomitant]
  8. PREDNISONE TAB [Concomitant]
  9. PRILOSEC [Concomitant]
  10. LOVASTATIN [Concomitant]
  11. AVANDARYL [Concomitant]
  12. AVANDARYL [Concomitant]
  13. ZEGERID [Concomitant]
  14. JANUVIA [Concomitant]
  15. RECLAST [Concomitant]
  16. DICLOFENAC SODIUM [Concomitant]
  17. ELOCON [Concomitant]
  18. LASIX [Concomitant]
  19. HYDROCORTISONE [Concomitant]
  20. LYRICA [Concomitant]
  21. METOCLOPRAMIDE [Suspect]
     Indication: ABDOMINAL PAIN
     Dosage: 10 MG;PO
     Route: 048
     Dates: start: 20061001, end: 20070801
  22. METOCLOPRAMIDE [Suspect]
     Indication: DYSPEPSIA
     Dosage: 10 MG;PO
     Route: 048
     Dates: start: 20061001, end: 20070801
  23. LOMOTIL [Concomitant]
  24. NYSTATIN [Concomitant]
  25. ZETIA [Concomitant]
  26. CYCLOBENAZPRINE [Concomitant]
  27. STEROIDS [Concomitant]
  28. INSULIN [Concomitant]
  29. ZOLOFT [Concomitant]
  30. AVANDIA [Concomitant]
  31. TRAMADOL HCL [Concomitant]
  32. COGENTIN [Concomitant]
  33. CITALOPRAM [Concomitant]
  34. BENADRYL [Concomitant]
  35. ATENOLOL [Concomitant]
  36. LANTUS [Concomitant]
  37. MELOXICAM [Concomitant]
  38. FLEXERIL [Concomitant]

REACTIONS (59)
  - JOINT CREPITATION [None]
  - URINARY TRACT INFECTION [None]
  - NAUSEA [None]
  - GINGIVAL PAIN [None]
  - ARTHRALGIA [None]
  - BRONCHITIS [None]
  - ABDOMINAL PAIN UPPER [None]
  - DUODENAL ULCER [None]
  - VITAMIN B12 DECREASED [None]
  - BLOOD CALCIUM DECREASED [None]
  - BLOOD MAGNESIUM DECREASED [None]
  - OSTEOPENIA [None]
  - ACTIVITIES OF DAILY LIVING IMPAIRED [None]
  - ASPARTATE AMINOTRANSFERASE INCREASED [None]
  - RED BLOOD CELL SEDIMENTATION RATE INCREASED [None]
  - NERVOUS SYSTEM DISORDER [None]
  - DEFORMITY [None]
  - DIZZINESS [None]
  - HYPOGLYCAEMIA [None]
  - POLYMYALGIA RHEUMATICA [None]
  - PYREXIA [None]
  - SLEEP APNOEA SYNDROME [None]
  - PLATELET COUNT DECREASED [None]
  - ALANINE AMINOTRANSFERASE INCREASED [None]
  - SPINAL COMPRESSION FRACTURE [None]
  - DYSKINESIA [None]
  - HYPERSOMNIA [None]
  - DENTAL CARIES [None]
  - DECREASED APPETITE [None]
  - MUSCULOSKELETAL STIFFNESS [None]
  - GASTROENTERITIS [None]
  - TARDIVE DYSKINESIA [None]
  - MENTAL DISORDER [None]
  - ASTHENIA [None]
  - SOMNOLENCE [None]
  - SPEECH DISORDER [None]
  - SWELLING [None]
  - NECK PAIN [None]
  - HEADACHE [None]
  - MEAN CELL VOLUME INCREASED [None]
  - CATARACT OPERATION [None]
  - IDIOPATHIC THROMBOCYTOPENIC PURPURA [None]
  - MULTIPLE INJURIES [None]
  - JAW DISORDER [None]
  - OEDEMA PERIPHERAL [None]
  - DIARRHOEA [None]
  - BLOOD COPPER DECREASED [None]
  - HAEMATOCRIT DECREASED [None]
  - BLOOD GLUCOSE INCREASED [None]
  - MYOPATHY [None]
  - EXTRAPYRAMIDAL DISORDER [None]
  - PAIN [None]
  - HYPOTHYROIDISM [None]
  - EPSTEIN-BARR VIRUS ANTIBODY POSITIVE [None]
  - ECONOMIC PROBLEM [None]
  - GASTRITIS [None]
  - RASH [None]
  - ENTEROCOCCUS TEST POSITIVE [None]
  - FIBROMYALGIA [None]
